FAERS Safety Report 13092024 (Version 1)
Quarter: 2017Q1

REPORT INFORMATION
  Report Type: Spontaneous
  Country: US (occurrence: US)
  Receive Date: 20170105
  Receipt Date: 20170105
  Transmission Date: 20170428
  Serious: Yes (Hospitalization)
  Sender: FDA-Public Use
  Company Number: None

PATIENT
  Age: 58 Year
  Sex: Female
  Weight: 122.58 kg

DRUGS (1)
  1. RANIBIZUMAUB 0.3 MG GENENTECH [Suspect]
     Active Substance: RANIBIZUMAB
     Indication: DIABETIC RETINAL OEDEMA
     Dosage: INTRAVITREAL
     Dates: start: 20131230

REACTIONS (1)
  - Bronchitis [None]

NARRATIVE: CASE EVENT DATE: 20170101
